FAERS Safety Report 17548232 (Version 2)
Quarter: 2020Q1

REPORT INFORMATION
  Report Type: Spontaneous
  Country: PT (occurrence: PT)
  Receive Date: 20200317
  Receipt Date: 20200320
  Transmission Date: 20200409
  Serious: Yes (Disabling)
  Sender: FDA-Public Use
  Company Number: PT-AUROBINDO-AUR-APL-2020-002750

PATIENT
  Age: 75 Year
  Sex: Male

DRUGS (7)
  1. PRAVASTATIN. [Suspect]
     Active Substance: PRAVASTATIN
     Indication: DYSLIPIDAEMIA
     Dosage: 40 MILLIGRAM, ONCE A DAY
     Route: 065
  2. SERTRALINE 50MG [Suspect]
     Active Substance: SERTRALINE HYDROCHLORIDE
     Indication: SUICIDAL IDEATION
  3. ESOMEPRAZOLE. [Suspect]
     Active Substance: ESOMEPRAZOLE MAGNESIUM
     Indication: PRODUCT USED FOR UNKNOWN INDICATION
     Dosage: 20 MILLIGRAM, ONCE A DAY
     Route: 065
  4. BROMAZEPAM [Suspect]
     Active Substance: BROMAZEPAM
     Indication: ANXIETY
     Dosage: 3 MILLIGRAM, ONCE A DAY
     Route: 065
  5. TRAZODONE [Suspect]
     Active Substance: TRAZODONE HYDROCHLORIDE
     Indication: DEPRESSED MOOD
     Dosage: 150 MILLIGRAM, ONCE A DAY
     Route: 065
     Dates: start: 201502, end: 20160326
  6. TRAZODONE [Suspect]
     Active Substance: TRAZODONE HYDROCHLORIDE
     Indication: SUICIDAL IDEATION
  7. SERTRALINE 50MG [Suspect]
     Active Substance: SERTRALINE HYDROCHLORIDE
     Indication: DEPRESSED MOOD
     Dosage: 50 MILLIGRAM, ONCE A DAY
     Route: 065
     Dates: start: 201502

REACTIONS (4)
  - Restlessness [Recovered/Resolved]
  - Euphoric mood [Recovered/Resolved]
  - Feeling jittery [Recovering/Resolving]
  - Treatment noncompliance [Recovering/Resolving]

NARRATIVE: CASE EVENT DATE: 2015
